FAERS Safety Report 5589356-4 (Version None)
Quarter: 2008Q1

REPORT INFORMATION
  Report Type: 
  Country: None (occurrence: None)
  Receive Date: 20080114
  Receipt Date: 20080110
  Transmission Date: 20080703
  Serious: Yes (Death)
  Sender: FDA-Public Use
  Company Number: FR-JNJFOC-20080102191

PATIENT
  Age: 19 Month
  Sex: Male

DRUGS (2)
  1. EPITOMAX [Suspect]
     Indication: LENNOX-GASTAUT SYNDROME
     Route: 048
  2. DEPAKENE [Concomitant]
     Route: 048

REACTIONS (3)
  - ATRIAL FIBRILLATION [None]
  - CARDIAC ARREST [None]
  - CONVULSION [None]
